FAERS Safety Report 19012756 (Version 1)
Quarter: 2021Q1

REPORT INFORMATION
  Report Type: Spontaneous
  Country: US (occurrence: US)
  Receive Date: 20210316
  Receipt Date: 20210316
  Transmission Date: 20210420
  Serious: Yes (Hospitalization)
  Sender: FDA-Public Use
  Company Number: US-SUPERNUS PHARMACEUTICALS, INC.-2021SUP00020

PATIENT
  Age: 49 Year
  Sex: Female
  Weight: 74.84 kg

DRUGS (14)
  1. UNSPECIFIED BLOOD THINNER [Suspect]
     Active Substance: UNSPECIFIED INGREDIENT
  2. DULOXETINE. [Concomitant]
     Active Substance: DULOXETINE
  3. UNSPECIFIED SEIZURE MEDICATIONS [Suspect]
     Active Substance: UNSPECIFIED INGREDIENT
  4. OXTELLAR XR [Suspect]
     Active Substance: OXCARBAZEPINE
     Indication: BIPOLAR DISORDER
     Dosage: 1200 MG, 2X/DAY
  5. UNSPECIFIED MS MEDICATIONS [Suspect]
     Active Substance: UNSPECIFIED INGREDIENT
  6. LIPITOR [Concomitant]
     Active Substance: ATORVASTATIN CALCIUM
  7. LAMICTAL [Concomitant]
     Active Substance: LAMOTRIGINE
  8. UNSPECIFIED MEDICATIONS [Suspect]
     Active Substance: UNSPECIFIED INGREDIENT
  9. VISTARIL [Concomitant]
     Active Substance: HYDROXYZINE PAMOATE
  10. XARELTO [Concomitant]
     Active Substance: RIVAROXABAN
  11. OXTELLAR XR [Suspect]
     Active Substance: OXCARBAZEPINE
     Indication: SEIZURE
  12. GABAPENTIN. [Concomitant]
     Active Substance: GABAPENTIN
  13. TRILEPTAL [Concomitant]
     Active Substance: OXCARBAZEPINE
  14. BACLOFEN. [Concomitant]
     Active Substance: BACLOFEN

REACTIONS (16)
  - Hypophagia [Not Recovered/Not Resolved]
  - Abnormal behaviour [Recovered/Resolved]
  - Eye pain [Not Recovered/Not Resolved]
  - Intentional product use issue [Not Recovered/Not Resolved]
  - Anger [Not Recovered/Not Resolved]
  - Anxiety [Not Recovered/Not Resolved]
  - Tremor [Not Recovered/Not Resolved]
  - Unevaluable event [Recovered/Resolved]
  - Depressed mood [Not Recovered/Not Resolved]
  - Overdose [Recovered/Resolved]
  - Emotional distress [Not Recovered/Not Resolved]
  - Weight decreased [Not Recovered/Not Resolved]
  - Withdrawal syndrome [Not Recovered/Not Resolved]
  - Crying [Not Recovered/Not Resolved]
  - Vertigo [Not Recovered/Not Resolved]
  - Headache [Not Recovered/Not Resolved]

NARRATIVE: CASE EVENT DATE: 2020
